FAERS Safety Report 5152040-5 (Version None)
Quarter: 2006Q4

REPORT INFORMATION
  Report Type: 
  Country: None (occurrence: None)
  Receive Date: 20061110
  Receipt Date: 20061110
  Transmission Date: 20070319
  Serious: No
  Sender: FDA-Public Use
  Company Number: None

PATIENT
  Age: 61 Year
  Sex: Male
  Weight: 117.9352 kg

DRUGS (1)
  1. DIOVAN [Suspect]
     Indication: HYPERTENSION
     Dosage: UNKNOWN   DAILY   PO
     Route: 048

REACTIONS (5)
  - DIZZINESS [None]
  - FLUSHING [None]
  - RASH [None]
  - STOMATITIS [None]
  - VERTIGO [None]
